FAERS Safety Report 8821611 (Version 2)
Quarter: 2015Q3

REPORT INFORMATION
  Report Type: Report from Study
  Country: US (occurrence: US)
  Receive Date: 20121002
  Receipt Date: 20150813
  Transmission Date: 20151125
  Serious: Yes (Death)
  Sender: FDA-Public Use
  Company Number: US-ROCHE-1123602

PATIENT
  Sex: Male

DRUGS (4)
  1. BENADRYL [Concomitant]
     Active Substance: DIPHENHYDRAMINE HYDROCHLORIDE
     Route: 042
  2. RITUXAN [Suspect]
     Active Substance: RITUXIMAB
     Dosage: 3RD DOSE
     Route: 042
     Dates: start: 20000218
  3. RITUXAN [Suspect]
     Active Substance: RITUXIMAB
     Indication: CHRONIC LYMPHOCYTIC LEUKAEMIA
     Route: 042
  4. TYLENOL [Concomitant]
     Active Substance: ACETAMINOPHEN
     Route: 048

REACTIONS (11)
  - Hypotension [Unknown]
  - Malaise [Unknown]
  - Death [Fatal]
  - Pyrexia [Unknown]
  - Confusional state [Unknown]
  - Rectal haemorrhage [Unknown]
  - Fatigue [Unknown]
  - Constipation [Unknown]
  - Chills [Unknown]
  - White blood cell count decreased [Unknown]
  - Pain in extremity [Unknown]
